FAERS Safety Report 5199129-2 (Version None)
Quarter: 2006Q4

REPORT INFORMATION
  Report Type: 
  Country: None (occurrence: None)
  Receive Date: 20060919
  Receipt Date: 20060428
  Transmission Date: 20070319
  Serious: Yes (Other)
  Sender: FDA-Public Use
  Company Number: HQWYE166204MAY06

PATIENT
  Age: 40 Year
  Sex: Female

DRUGS (3)
  1. ADVIL [Suspect]
     Indication: HEADACHE
     Dosage: 1 CAPSULE X 1, ORAL
     Route: 048
     Dates: start: 20060428, end: 20060428
  2. MULTIVITAMINS, PLAIN (MULTIVITAMINS, PLAIN) [Concomitant]
  3. CALCIUM (CALCIUM) [Concomitant]

REACTIONS (2)
  - GLOSSODYNIA [None]
  - PHARMACEUTICAL PRODUCT COMPLAINT [None]
